FAERS Safety Report 5985302-X (Version None)
Quarter: 2008Q4

REPORT INFORMATION
  Report Type: 
  Country: None (occurrence: None)
  Receive Date: 20081203
  Receipt Date: 20080918
  Transmission Date: 20090506
  Serious: Yes (Hospitalization)
  Sender: FDA-Public Use
  Company Number: 2008PL000185

PATIENT
  Age: 44 Year
  Sex: Male

DRUGS (5)
  1. AZATHIOPRINE [Suspect]
     Indication: IMMUNOSUPPRESSANT DRUG THERAPY
     Dosage: ;UNK;
  2. INFIXIMAB (NO PREF. NAME) [Suspect]
     Indication: DRUG USE FOR UNKNOWN INDICATION
  3. ADALIMUMAB (ADALIMIMAB) [Suspect]
     Indication: DRUG USE FOR UNKNOWN INDICATION
  4. CYCLOSPORINE [Concomitant]
  5. CIPROFLOXACIN HCL [Concomitant]

REACTIONS (3)
  - ANAEMIA [None]
  - LEUKOCYTOSIS [None]
  - LUPUS-LIKE SYNDROME [None]
